FAERS Safety Report 13323208 (Version 1)
Quarter: 2017Q1

REPORT INFORMATION
  Report Type: Report from Study
  Country: US (occurrence: US)
  Receive Date: 20170310
  Receipt Date: 20170310
  Transmission Date: 20170428
  Serious: Yes (Other)
  Sender: FDA-Public Use
  Company Number: US-TAKEDA-2017TUS004776

PATIENT
  Sex: Female
  Weight: 58.5 kg

DRUGS (2)
  1. BENADRYL [Concomitant]
     Active Substance: DIPHENHYDRAMINE HYDROCHLORIDE
     Indication: PREMEDICATION
     Dosage: UNK
     Route: 042
  2. VEDOLIZUMAB [Suspect]
     Active Substance: VEDOLIZUMAB
     Indication: COLITIS ULCERATIVE
     Dosage: 300 MG, UNK
     Route: 042
     Dates: start: 201410

REACTIONS (9)
  - Decreased appetite [Unknown]
  - Dyspnoea [Recovered/Resolved]
  - Trigeminal neuralgia [Unknown]
  - Heart rate abnormal [Not Recovered/Not Resolved]
  - Blood pressure abnormal [Not Recovered/Not Resolved]
  - Head injury [Unknown]
  - Meningioma [Not Recovered/Not Resolved]
  - Concussion [Unknown]
  - Loss of consciousness [Unknown]
